FAERS Safety Report 7326442-2 (Version None)
Quarter: 2011Q1

REPORT INFORMATION
  Report Type: 
  Country: None (occurrence: None)
  Receive Date: 20110218
  Receipt Date: 20110202
  Transmission Date: 20110831
  Serious: Yes (Hospitalization)
  Sender: FDA-Public Use
  Company Number: 2011MA001060

PATIENT
  Age: 39 Year

DRUGS (1)
  1. PROPRANOLOL HCL EXTENDED-RELEASE CAPSULES USP, 120MG (AELLC) (PROPRANO [Suspect]

REACTIONS (8)
  - PERIPHERAL ISCHAEMIA [None]
  - APPLICATION SITE BLEEDING [None]
  - SEPTIC SHOCK [None]
  - CARDIAC ARREST [None]
  - SHOCK [None]
  - BRAIN DEATH [None]
  - OVERDOSE [None]
  - THROMBOSIS [None]
